FAERS Safety Report 9206067 (Version 2)
Quarter: 2013Q2

REPORT INFORMATION
  Report Type: Spontaneous
  Country: US (occurrence: None)
  Receive Date: 20130401
  Receipt Date: 20130415
  Transmission Date: 20140414
  Serious: Yes (Hospitalization)
  Sender: FDA-Public Use
  Company Number: 2013-0515

PATIENT
  Age: 65 Year
  Sex: Male

DRUGS (6)
  1. KYPROLIS (CARFILZOMIB) (INJECTION FOR INFUSION) (CARFILZOMIB) [Suspect]
     Indication: PLASMA CELL MYELOMA
     Dosage: 12.5714 MG (44 MG, 2 IN 1 WK), INTRAVENOUS
     Route: 042
     Dates: start: 20121211
  2. AMLODIPINE (AMLODIPINE) (AMLODIPINE) [Concomitant]
  3. SINEMET (LEVODOPA) (LEVODOPA) [Concomitant]
  4. HYDROCLOROTHIAZIDE (HYDROCLOROTHIAZIDE) (HYDROCLOROTHIAZIDE) [Concomitant]
  5. SELEGILINE (SELEGILINE) (SELEGILINE) [Concomitant]
  6. VITAMINS (VITAMINS NOS) (VITAMINS NOS) [Concomitant]

REACTIONS (3)
  - Haemolytic uraemic syndrome [None]
  - Platelet count decreased [None]
  - Dialysis [None]
